FAERS Safety Report 4886812-9 (Version None)
Quarter: 2006Q1

REPORT INFORMATION
  Report Type: 
  Country: None (occurrence: None)
  Receive Date: 20060119
  Receipt Date: 20060119
  Transmission Date: 20060701
  Serious: Yes (Hospitalization)
  Sender: FDA-Public Use
  Company Number: None

PATIENT
  Age: 83 Year
  Sex: Female

DRUGS (1)
  1. SERTRALINE HCL [Suspect]
     Indication: DEPRESSION
     Dosage: 150MG  DAILY  PO
     Route: 048

REACTIONS (3)
  - HAEMATOMA [None]
  - PAIN IN EXTREMITY [None]
  - PLATELET DISORDER [None]
